FAERS Safety Report 19312069 (Version 1)
Quarter: 2021Q2

REPORT INFORMATION
  Report Type: Spontaneous
  Country: US (occurrence: US)
  Receive Date: 20210527
  Receipt Date: 20210527
  Transmission Date: 20210717
  Serious: No
  Sender: FDA-Public Use
  Company Number: US-ASTRAZENECA-2021A371815

PATIENT
  Sex: Female
  Weight: 68 kg

DRUGS (1)
  1. LOKELMA [Suspect]
     Active Substance: SODIUM ZIRCONIUM CYCLOSILICATE
     Indication: BLOOD POTASSIUM INCREASED
     Route: 048
     Dates: start: 20210424

REACTIONS (3)
  - Hypertension [Not Recovered/Not Resolved]
  - Product administration error [Not Recovered/Not Resolved]
  - Product dose omission issue [Not Recovered/Not Resolved]
